FAERS Safety Report 21816969 (Version 3)
Quarter: 2023Q1

REPORT INFORMATION
  Report Type: Spontaneous
  Country: AU (occurrence: AU)
  Receive Date: 20230104
  Receipt Date: 20230113
  Transmission Date: 20230418
  Serious: Yes (Hospitalization, Other)
  Sender: FDA-Public Use
  Company Number: AU-PFIZER INC-PV202300000326

PATIENT
  Sex: Female
  Weight: 3.155 kg

DRUGS (1)
  1. LIDOCAINE HYDROCHLORIDE [Suspect]
     Active Substance: LIDOCAINE HYDROCHLORIDE
     Indication: Local anaesthesia
     Dosage: 15 ML OF 2 % LIGNOCAINE
     Route: 064

REACTIONS (7)
  - Foetal exposure during delivery [Unknown]
  - Toxicity to various agents [Recovered/Resolved]
  - Infantile apnoea [Recovered/Resolved]
  - Pallor [Recovered/Resolved]
  - Hypotonia neonatal [Recovered/Resolved]
  - Neonatal seizure [Recovered/Resolved]
  - Neonatal hypoxia [Recovered/Resolved]
